FAERS Safety Report 4377990-9 (Version None)
Quarter: 2004Q2

REPORT INFORMATION
  Report Type: 
  Country: None (occurrence: None)
  Receive Date: 20040609
  Receipt Date: 20040527
  Transmission Date: 20050107
  Serious: Yes (Other)
  Sender: FDA-Public Use
  Company Number: 2004035548

PATIENT
  Age: 34 Year
  Sex: Female
  Weight: 55 kg

DRUGS (4)
  1. VIBRAMYCIN [Suspect]
     Indication: URINARY TRACT INFECTION
     Dosage: ORAL
     Route: 048
     Dates: start: 20010801
  2. MEFENAMIC ACID [Suspect]
     Indication: URINARY TRACT INFECTION
     Dosage: ORAL
     Route: 048
     Dates: start: 20010801
  3. METHYLERGOMETRINE (METHYLERGOMETRINE) [Suspect]
     Indication: URINARY TRACT INFECTION
     Dosage: ORAL
     Route: 048
     Dates: start: 20010801
  4. MARVELON (DESOGESTREL, ETHINYLESTRADIOL) [Concomitant]

REACTIONS (2)
  - RASH ERYTHEMATOUS [None]
  - RASH PRURITIC [None]
